FAERS Safety Report 4932693-4 (Version None)
Quarter: 2006Q1

REPORT INFORMATION
  Report Type: 
  Country: None (occurrence: None)
  Receive Date: 20060301
  Receipt Date: 20060214
  Transmission Date: 20060701
  Serious: Yes (Hospitalization)
  Sender: FDA-Public Use
  Company Number: MK200602-0191-1

PATIENT
  Age: 75 Year
  Sex: Male
  Weight: 83.0083 kg

DRUGS (2)
  1. ULTRA-TECHNEKOW FM [Suspect]
     Indication: SCAN MYOCARDIAL PERFUSION
     Dosage: 19 MCI/ONCE/IV
     Route: 042
     Dates: start: 20051116, end: 20051116
  2. MYOVIEW [Suspect]
     Dosage: 19 MCI/ONCE/IV
     Route: 042

REACTIONS (7)
  - CONDITION AGGRAVATED [None]
  - EMPYEMA [None]
  - INCREASED UPPER AIRWAY SECRETION [None]
  - LOBAR PNEUMONIA [None]
  - OEDEMA PERIPHERAL [None]
  - PNEUMONIA ASPIRATION [None]
  - PURULENCE [None]
